FAERS Safety Report 8134641-5 (Version None)
Quarter: 2012Q1

REPORT INFORMATION
  Report Type: 
  Country: None (occurrence: None)
  Receive Date: 20120214
  Receipt Date: 20120207
  Transmission Date: 20120608
  Serious: Yes (Death, Other)
  Sender: FDA-Public Use
  Company Number: VE-PFIZER INC-2011264191

PATIENT
  Age: 45 Year
  Sex: Male

DRUGS (2)
  1. RAPAMUNE [Suspect]
     Dosage: 2 MG, 1X/DAY
     Route: 048
     Dates: start: 20110515, end: 20110901
  2. RAPAMUNE [Suspect]
     Dosage: 1 MG, 1X/DAY
     Route: 048
     Dates: start: 20110901

REACTIONS (8)
  - ORGAN FAILURE [None]
  - HYPERBILIRUBINAEMIA [None]
  - PNEUMONIA [None]
  - LIVER INJURY [None]
  - HEPATIC FAILURE [None]
  - TRANSAMINASES INCREASED [None]
  - RESPIRATORY ARREST [None]
  - WEIGHT DECREASED [None]
